FAERS Safety Report 5444017-7 (Version None)
Quarter: 2007Q3

REPORT INFORMATION
  Report Type: 
  Country: None (occurrence: None)
  Receive Date: 20070731
  Receipt Date: 20070618
  Transmission Date: 20080115
  Serious: No
  Sender: FDA-Public Use
  Company Number: US200706004140

PATIENT
  Age: 66 Year
  Sex: Male

DRUGS (4)
  1. BYETTA [Suspect]
     Indication: DIABETES MELLITUS
     Dosage: 5 UG, 2/D, SUBCUTANEOUS
     Route: 058
     Dates: start: 20070618
  2. GLUCOPHAGE [Concomitant]
  3. HUMALOG MIX 75/25 [Concomitant]
  4. TOPROL-XL [Concomitant]

REACTIONS (2)
  - INCORRECT DOSE ADMINISTERED [None]
  - TENSION [None]
